FAERS Safety Report 15948718 (Version 1)
Quarter: 2019Q1

REPORT INFORMATION
  Report Type: Spontaneous
  Country: GB (occurrence: GB)
  Receive Date: 20190212
  Receipt Date: 20190212
  Transmission Date: 20190417
  Serious: Yes (Life-Threatening, Disabling, Other)
  Sender: FDA-Public Use
  Company Number: GB-ACCORD-106050

PATIENT
  Age: 18 Year
  Sex: Male
  Weight: 70 kg

DRUGS (6)
  1. IBUPROFEN. [Concomitant]
     Active Substance: IBUPROFEN
  2. PARACETAMOL [Concomitant]
     Active Substance: ACETAMINOPHEN
  3. SERTRALINE [Suspect]
     Active Substance: SERTRALINE HYDROCHLORIDE
     Indication: MAJOR DEPRESSION
     Route: 048
     Dates: start: 20171113, end: 20171116
  4. ALVERINE [Concomitant]
     Active Substance: ALVERINE
  5. SIMETHICONE (DIMETHICONE) [Concomitant]
     Active Substance: DIMETHICONE
  6. LAXIDO [Concomitant]
     Active Substance: POLYETHYLENE GLYCOL 3350\POTASSIUM CHLORIDE\SODIUM BICARBONATE\SODIUM CHLORIDE

REACTIONS (9)
  - Anxiety [Recovering/Resolving]
  - Tremor [Recovering/Resolving]
  - Akathisia [Unknown]
  - Suicidal ideation [Recovered/Resolved with Sequelae]
  - Agitation [Recovering/Resolving]
  - Hyperhidrosis [Not Recovered/Not Resolved]
  - Restlessness [Recovering/Resolving]
  - Urinary incontinence [Recovering/Resolving]
  - Muscle spasms [Recovering/Resolving]

NARRATIVE: CASE EVENT DATE: 20171113
